FAERS Safety Report 6403747-0 (Version None)
Quarter: 2009Q4

REPORT INFORMATION
  Report Type: 
  Country: None (occurrence: None)
  Receive Date: 20091015
  Receipt Date: 20091015
  Transmission Date: 20100525
  Serious: No
  Sender: FDA-Public Use
  Company Number: None

PATIENT
  Sex: Male

DRUGS (2)
  1. GENTAK [Suspect]
     Indication: OPHTHALMIA NEONATORUM
     Dosage: 1 APPLICATION ONCE OPHTHALMIC
     Route: 047
     Dates: start: 20090924, end: 20090924
  2. GENTAK [Suspect]
     Indication: PROPHYLAXIS
     Dosage: 1 APPLICATION ONCE OPHTHALMIC
     Route: 047
     Dates: start: 20090924, end: 20090924

REACTIONS (1)
  - BLISTER [None]
